FAERS Safety Report 7465168-1 (Version None)
Quarter: 2011Q2

REPORT INFORMATION
  Report Type: 
  Country: None (occurrence: None)
  Receive Date: 20110509
  Receipt Date: 20110429
  Transmission Date: 20111010
  Serious: Yes (Death, Hospitalization, Other)
  Sender: FDA-Public Use
  Company Number: US-JNJFOC-20100901287

PATIENT
  Sex: Male

DRUGS (2)
  1. LEVAQUIN [Suspect]
     Indication: PRODUCT USED FOR UNKNOWN INDICATION
     Route: 048
  2. LEVAQUIN [Suspect]
     Route: 042

REACTIONS (4)
  - RENAL FAILURE [None]
  - STEVENS-JOHNSON SYNDROME [None]
  - POST-TRAUMATIC STRESS DISORDER [None]
  - TOXIC EPIDERMAL NECROLYSIS [None]
